FAERS Safety Report 7534375-1 (Version None)
Quarter: 2011Q2

REPORT INFORMATION
  Report Type: 
  Country: None (occurrence: None)
  Receive Date: 20110608
  Receipt Date: 20110519
  Transmission Date: 20111010
  Serious: No
  Sender: FDA-Public Use
  Company Number: US-AMGEN-USASP2011025995

PATIENT
  Sex: Female

DRUGS (2)
  1. CALCIUM WITH VITAMIN D             /00944201/ [Concomitant]
     Dates: end: 20101201
  2. PROLIA [Suspect]
     Indication: OSTEOPOROSIS POSTMENOPAUSAL
     Dosage: 60 MG, UNK
     Dates: start: 20100901

REACTIONS (8)
  - PRURITUS [None]
  - MYALGIA [None]
  - SKIN MASS [None]
  - SCAR [None]
  - WEIGHT INCREASED [None]
  - ERYTHEMA [None]
  - HYPOAESTHESIA [None]
  - FEELING HOT [None]
